FAERS Safety Report 10221402 (Version 1)
Quarter: 2014Q2

REPORT INFORMATION
  Report Type: Spontaneous
  Country: DE (occurrence: DE)
  Receive Date: 20140606
  Receipt Date: 20140606
  Transmission Date: 20141212
  Serious: Yes (Other)
  Sender: FDA-Public Use
  Company Number: DE-009507513-1406DEU002776

PATIENT
  Sex: Male

DRUGS (7)
  1. RIBAVIRIN [Suspect]
     Dosage: 400 MG WEEKLY, WEEK 1-6
  2. RIBAVIRIN [Suspect]
     Dosage: 200 MG WEEKLY, WEEK 7-8
  3. RIBAVIRIN [Suspect]
     Dosage: 200 MG WEEKLY, WEEK 15-24
  4. PEGINTERFERON ALFA-2A [Suspect]
     Dosage: 180 MICROGRAM, UNK
  5. PEGINTERFERON ALFA-2A [Suspect]
     Dosage: 90 MICROGRAM, WEEK 7-24
  6. TELAPREVIR [Suspect]
     Dosage: UNK
  7. EPOETIN [Suspect]
     Dosage: 16000 IU/WEEK, WEEK 1-24

REACTIONS (4)
  - Osteoporotic fracture [Unknown]
  - Transfusion [Unknown]
  - Anaemia [Unknown]
  - Hepatitis C [Unknown]
